FAERS Safety Report 10947472 (Version 2)
Quarter: 2015Q2

REPORT INFORMATION
  Report Type: Spontaneous
  Country: US (occurrence: US)
  Receive Date: 20150323
  Receipt Date: 20150409
  Transmission Date: 20150821
  Serious: No
  Sender: FDA-Public Use
  Company Number: US-009507513-1503USA009045

PATIENT
  Age: 77 Year
  Sex: Female

DRUGS (1)
  1. MIRALAX [Suspect]
     Active Substance: POLYETHYLENE GLYCOL 3350
     Indication: COLONOSCOPY
     Dosage: 17 G, BID
     Route: 048
     Dates: start: 20150304

REACTIONS (6)
  - Inappropriate schedule of drug administration [Unknown]
  - Prescribed overdose [Unknown]
  - Drug effect delayed [Unknown]
  - Product use issue [Unknown]
  - Drug prescribing error [Unknown]
  - Drug effect decreased [Unknown]

NARRATIVE: CASE EVENT DATE: 201503
